FAERS Safety Report 24784219 (Version 1)
Quarter: 2024Q4

REPORT INFORMATION
  Report Type: Spontaneous
  Country: CN (occurrence: CN)
  Receive Date: 20241227
  Receipt Date: 20241227
  Transmission Date: 20250114
  Serious: Yes (Hospitalization)
  Sender: ELI LILLY AND COMPANY
  Company Number: CN-ELI_LILLY_AND_COMPANY-CN202412017109

PATIENT
  Sex: Male
  Weight: 78 kg

DRUGS (3)
  1. ALIMTA [Suspect]
     Active Substance: PEMETREXED DISODIUM
     Indication: Neoplasm malignant
     Dosage: 1 G, EVERY TWO WEEKS (Q2W)
     Route: 041
     Dates: start: 20230812, end: 20230812
  2. CARBOPLATIN [Suspect]
     Active Substance: CARBOPLATIN
     Indication: Neoplasm malignant
     Dosage: 700 MG, EVERY TWO WEEKS (Q2W)
     Route: 041
     Dates: start: 20230812, end: 20230812
  3. KEYTRUDA [Suspect]
     Active Substance: PEMBROLIZUMAB
     Indication: Neoplasm malignant
     Dosage: 0.2 G, EVERY TWO WEEKS (Q2W)
     Route: 041
     Dates: start: 20230812, end: 20230812

REACTIONS (1)
  - Immune-mediated dermatitis [Recovering/Resolving]

NARRATIVE: CASE EVENT DATE: 20230822
